FAERS Safety Report 6406943-1 (Version None)
Quarter: 2009Q4

REPORT INFORMATION
  Report Type: 
  Country: None (occurrence: None)
  Receive Date: 20091020
  Receipt Date: 20091012
  Transmission Date: 20100525
  Serious: Yes (Hospitalization, Other)
  Sender: FDA-Public Use
  Company Number: US-ASTRAZENECA-2009SE19683

PATIENT
  Age: 77 Year
  Sex: Female
  Weight: 101.6 kg

DRUGS (9)
  1. PRILOSEC [Suspect]
     Route: 065
     Dates: start: 20090903
  2. ZYVOX [Interacting]
     Indication: UROSEPSIS
     Dosage: EVERY 12 HOURS
     Route: 048
     Dates: start: 20090904, end: 20090901
  3. ZYVOX [Interacting]
     Indication: PSEUDOMONAS INFECTION
     Dosage: EVERY 12 HOURS
     Route: 048
     Dates: start: 20090904, end: 20090901
  4. CLEOCIN [Interacting]
     Route: 065
  5. GLIPIZIDE [Interacting]
     Route: 065
  6. BENZYLPENICILLIN POTASSIUM [Interacting]
     Route: 065
  7. CRANBERRY/VITAMIN C/VITAMIN E [Interacting]
     Indication: URINARY TRACT INFECTION
     Dosage: 1680/VITAMIN C 100/VITAMIN E 3 IU
     Route: 048
     Dates: start: 20090907
  8. DORIPENEM [Concomitant]
     Route: 042
     Dates: start: 20090908, end: 20090910
  9. VANCOMYCIN [Concomitant]
     Dosage: 1 MG EVERY 18 HOURS
     Route: 065
     Dates: start: 20090908, end: 20090910

REACTIONS (4)
  - DRUG INEFFECTIVE [None]
  - DRUG INTERACTION [None]
  - HYPERSENSITIVITY [None]
  - PYREXIA [None]
